FAERS Safety Report 6004908-5 (Version None)
Quarter: 2008Q4

REPORT INFORMATION
  Report Type: 
  Country: None (occurrence: None)
  Receive Date: 20081216
  Receipt Date: 20080104
  Transmission Date: 20090506
  Serious: No
  Sender: FDA-Public Use
  Company Number: US-AMGEN-KDL257701

PATIENT
  Sex: Female

DRUGS (5)
  1. ENBREL [Suspect]
     Indication: RHEUMATOID ARTHRITIS
     Route: 058
     Dates: start: 20050503
  2. METHOTREXATE [Concomitant]
     Route: 048
     Dates: start: 20030201
  3. FOLIC ACID [Concomitant]
     Dates: start: 20030201
  4. LETROZOLE [Concomitant]
  5. CELEBREX [Concomitant]
     Dates: start: 20051205

REACTIONS (3)
  - FALL [None]
  - OPEN WOUND [None]
  - SKIN LACERATION [None]
